FAERS Safety Report 19378339 (Version 1)
Quarter: 2021Q2

REPORT INFORMATION
  Report Type: Spontaneous
  Country: US (occurrence: US)
  Receive Date: 20210605
  Receipt Date: 20210605
  Transmission Date: 20210717
  Serious: Yes (Hospitalization, Other)
  Sender: FDA-Public Use
  Company Number: US-UNITED THERAPEUTICS-UNT-2021-010098

PATIENT
  Age: 56 Year
  Sex: Female
  Weight: 130.16 kg

DRUGS (3)
  1. OPSUMIT [Concomitant]
     Active Substance: MACITENTAN
     Indication: PRODUCT USED FOR UNKNOWN INDICATION
     Dosage: UNK
     Route: 065
  2. REMODULIN [Suspect]
     Active Substance: TREPROSTINIL
     Indication: PULMONARY ARTERIAL HYPERTENSION
     Dosage: UNK, CONTINUING
     Route: 041
     Dates: start: 20210526
  3. REMODULIN [Suspect]
     Active Substance: TREPROSTINIL
     Dosage: 0.064 ?G/KG, CONTINUING
     Route: 041
     Dates: start: 202105

REACTIONS (7)
  - Urinary retention [Unknown]
  - Device leakage [Recovered/Resolved]
  - Pain in extremity [Unknown]
  - Neck pain [Unknown]
  - Diarrhoea [Unknown]
  - Decreased appetite [Unknown]
  - Back pain [Unknown]

NARRATIVE: CASE EVENT DATE: 202105
